FAERS Safety Report 6355960-9 (Version None)
Quarter: 2009Q3

REPORT INFORMATION
  Report Type: 
  Country: None (occurrence: None)
  Receive Date: 20090911
  Receipt Date: 20090911
  Transmission Date: 20100115
  Serious: Yes (Life-Threatening, Disabling, Other)
  Sender: FDA-Public Use
  Company Number: None

PATIENT
  Age: 79 Year
  Sex: Male
  Weight: 112.0385 kg

DRUGS (2)
  1. AMIODARONE HCL [Suspect]
     Indication: CARDIAC DISORDER
     Dosage: 2 DAY 1ST 7DAY MORNINGS + NITE MOUTH; 1 - DAY + CONT. DAILY MOUTH
     Route: 048
     Dates: start: 20090604, end: 20090713
  2. AMIODARONE HCL [Suspect]
     Indication: LUNG DISORDER
     Dosage: 2 DAY 1ST 7DAY MORNINGS + NITE MOUTH; 1 - DAY + CONT. DAILY MOUTH
     Route: 048
     Dates: start: 20090604, end: 20090713

REACTIONS (3)
  - LUNG DISORDER [None]
  - OXYGEN SUPPLEMENTATION [None]
  - PULMONARY TOXICITY [None]
